FAERS Safety Report 4864482-3 (Version None)
Quarter: 2005Q4

REPORT INFORMATION
  Report Type: 
  Country: None (occurrence: None)
  Receive Date: 20051222
  Receipt Date: 20050523
  Transmission Date: 20060501
  Serious: Yes (Other)
  Sender: FDA-Public Use
  Company Number: HU-BRISTOL-MYERS SQUIBB COMPANY-12981056

PATIENT
  Age: 81 Year
  Sex: Female

DRUGS (5)
  1. DUOPRIL TABS [Suspect]
     Indication: HYPERTENSION
     Route: 048
     Dates: start: 20050511, end: 20050513
  2. BETALOC [Concomitant]
  3. VERAPAMIL [Concomitant]
  4. MAGNESIUM [Concomitant]
  5. NITROMINT [Concomitant]

REACTIONS (4)
  - INSOMNIA [None]
  - NAUSEA [None]
  - TINNITUS [None]
  - URINARY RETENTION [None]
